FAERS Safety Report 25763769 (Version 1)
Quarter: 2025Q3

REPORT INFORMATION
  Report Type: Spontaneous
  Country: US (occurrence: US)
  Receive Date: 20250905
  Receipt Date: 20250905
  Transmission Date: 20251020
  Serious: No
  Sender: DOMPE FARMACEUTICI
  Company Number: US-FARMAPROD-202411-3805

PATIENT
  Sex: Female
  Weight: 51.71 kg

DRUGS (2)
  1. OXERVATE [Suspect]
     Active Substance: CENEGERMIN-BKBJ
     Indication: Keratitis
     Route: 047
     Dates: start: 20241024
  2. OXERVATE [Suspect]
     Active Substance: CENEGERMIN-BKBJ
     Indication: Dry eye

REACTIONS (8)
  - Eye pain [Unknown]
  - Eye irritation [Unknown]
  - Off label use [Unknown]
  - Off label use [Unknown]
  - Lacrimation increased [Unknown]
  - Eye irritation [Unknown]
  - Dry eye [Unknown]
  - Drug hypersensitivity [Unknown]
